FAERS Safety Report 8256279-1 (Version None)
Quarter: 2012Q2

REPORT INFORMATION
  Report Type: 
  Country: None (occurrence: None)
  Receive Date: 20120403
  Receipt Date: 20120327
  Transmission Date: 20120825
  Serious: Yes (Other)
  Sender: FDA-Public Use
  Company Number: SG-B.I. PHARMACEUTICALS,INC./RIDGEFIELD-2012-BP-06166YA

PATIENT
  Age: 68 Year
  Sex: Male

DRUGS (1)
  1. TAMSULOSIN HCL [Suspect]
     Route: 065

REACTIONS (1)
  - DRUG ERUPTION [None]
